FAERS Safety Report 9424070 (Version 2)
Quarter: 2013Q3

REPORT INFORMATION
  Report Type: Spontaneous
  Country: US (occurrence: US)
  Receive Date: 20130729
  Receipt Date: 20130826
  Transmission Date: 20140515
  Serious: Yes (Other)
  Sender: FDA-Public Use
  Company Number: PHEH2013US015728

PATIENT
  Sex: Male

DRUGS (1)
  1. VALSARTAN [Suspect]
     Dosage: UNK UKN, UNK

REACTIONS (3)
  - Cerebrovascular accident [Unknown]
  - Drug intolerance [Unknown]
  - Drug ineffective [Unknown]
